FAERS Safety Report 16034367 (Version 1)
Quarter: 2019Q1

REPORT INFORMATION
  Report Type: Spontaneous
  Country: US (occurrence: US)
  Receive Date: 20190205
  Receipt Date: 20190205
  Transmission Date: 20190418
  Serious: Yes (Death)
  Sender: FDA-Public Use
  Company Number: None

PATIENT
  Age: 65 Year
  Sex: Male

DRUGS (1)
  1. TACROLIMUS CAP 0.5 MG [Suspect]
     Active Substance: TACROLIMUS
     Dates: start: 201712, end: 201811

REACTIONS (1)
  - Death [None]

NARRATIVE: CASE EVENT DATE: 20181127
